FAERS Safety Report 13211137 (Version 1)
Quarter: 2017Q1

REPORT INFORMATION
  Report Type: Spontaneous
  Country: US (occurrence: US)
  Receive Date: 20170210
  Receipt Date: 20170210
  Transmission Date: 20170428
  Serious: Yes (Hospitalization)
  Sender: FDA-Public Use
  Company Number: None

PATIENT
  Age: 59 Year
  Sex: Female
  Weight: 47.25 kg

DRUGS (2)
  1. SYNTHROID [Concomitant]
     Active Substance: LEVOTHYROXINE SODIUM
  2. FLEET (GLYCERIN) [Suspect]
     Active Substance: GLYCERIN
     Indication: CONSTIPATION
     Dosage: ?          QUANTITY:1 SUPPOSITORY(IES);?
     Route: 054
     Dates: start: 20170203

REACTIONS (6)
  - Application site injury [None]
  - Application site infection [None]
  - Injury associated with device [None]
  - Proctitis [None]
  - Scratch [None]
  - Device issue [None]

NARRATIVE: CASE EVENT DATE: 20170207
